FAERS Safety Report 7270231-4 (Version None)
Quarter: 2011Q1

REPORT INFORMATION
  Report Type: 
  Country: None (occurrence: None)
  Receive Date: 20110125
  Receipt Date: 20110125
  Transmission Date: 20110831
  Serious: Yes (Other)
  Sender: FDA-Public Use
  Company Number: None

PATIENT
  Age: 34 Year
  Sex: Female
  Weight: 63.5036 kg

DRUGS (5)
  1. PREDINOSE [Concomitant]
  2. LEVOXYL [Concomitant]
  3. REMICADE [Concomitant]
  4. CIPROFLAXCIN 500 MG COBALT [Suspect]
     Indication: SINUSITIS
     Dosage: ONE TWICE DAILY PO
     Route: 048
     Dates: start: 20101216, end: 20101222
  5. CIPROFLAXIN 500 MG COBALT [Suspect]
     Indication: SINUSITIS
     Dosage: ONE TWICE DAILY PO
     Route: 048
     Dates: start: 20101223, end: 20101230

REACTIONS (12)
  - TENDON DISORDER [None]
  - NO THERAPEUTIC RESPONSE [None]
  - PAIN [None]
  - ARTHRALGIA [None]
  - TENDON PAIN [None]
  - OROPHARYNGEAL PAIN [None]
  - MYALGIA [None]
  - SENSATION OF FOREIGN BODY [None]
  - SWELLING [None]
  - PAIN IN EXTREMITY [None]
  - MOVEMENT DISORDER [None]
  - LIP SWELLING [None]
